FAERS Safety Report 14402215 (Version 4)
Quarter: 2018Q2

REPORT INFORMATION
  Report Type: Spontaneous
  Country: US (occurrence: US)
  Receive Date: 20180117
  Receipt Date: 20180511
  Transmission Date: 20180711
  Serious: No
  Sender: FDA-Public Use
  Company Number: US-JNJFOC-20180103421

PATIENT
  Age: 32 Year
  Sex: Female
  Weight: 52.16 kg

DRUGS (2)
  1. TREMFYA [Suspect]
     Active Substance: GUSELKUMAB
     Indication: PSORIATIC ARTHROPATHY
     Dosage: FREQUENCY: AT WEEK 4 THEN EVERY 8 WEEKS
     Route: 058
     Dates: start: 20171010
  2. TREMFYA [Suspect]
     Active Substance: GUSELKUMAB
     Indication: PSORIASIS
     Dosage: FREQUENCY: AT WEEK 4 THEN EVERY 8 WEEKS
     Route: 058
     Dates: start: 20171010

REACTIONS (5)
  - Drug ineffective [Unknown]
  - Off label use [Unknown]
  - Pain [Not Recovered/Not Resolved]
  - Drug effect decreased [Not Recovered/Not Resolved]
  - Product use in unapproved indication [Unknown]

NARRATIVE: CASE EVENT DATE: 201710
